FAERS Safety Report 5776901-9 (Version None)
Quarter: 2008Q2

REPORT INFORMATION
  Report Type: 
  Country: None (occurrence: None)
  Receive Date: 20080618
  Receipt Date: 20080612
  Transmission Date: 20081010
  Serious: Yes (Hospitalization, Congenital Anomaly)
  Sender: FDA-Public Use
  Company Number: A0733523A

PATIENT
  Age: 56 Year
  Sex: Male

DRUGS (10)
  1. AVANDIA [Suspect]
     Indication: DRUG USE FOR UNKNOWN INDICATION
     Dosage: 4MG TWICE PER DAY
     Route: 065
     Dates: start: 20021215, end: 20070518
  2. AVANDAMET [Suspect]
     Indication: DRUG USE FOR UNKNOWN INDICATION
     Route: 065
     Dates: start: 20030905, end: 20051218
  3. ACCOLATE [Concomitant]
  4. VYTORIN [Concomitant]
  5. TARKA [Concomitant]
  6. CELEBREX [Concomitant]
     Dosage: 200MG PER DAY
  7. LANTUS [Concomitant]
     Dosage: 800MG PER DAY
  8. HYDROCHLOROTHIAZIDE [Concomitant]
     Dosage: 25MG PER DAY
  9. LOPID [Concomitant]
     Dosage: 600MG PER DAY
  10. NOVOLOG [Concomitant]

REACTIONS (3)
  - ANGINA UNSTABLE [None]
  - CORONARY ARTERY DISEASE [None]
  - MYOCARDIAL INFARCTION [None]
